FAERS Safety Report 7948617-1 (Version None)
Quarter: 2011Q4

REPORT INFORMATION
  Report Type: 
  Country: None (occurrence: None)
  Receive Date: 20111130
  Receipt Date: 20111117
  Transmission Date: 20120403
  Serious: Yes (Other)
  Sender: FDA-Public Use
  Company Number: CA-JNJFOC-20111108319

PATIENT
  Sex: Male
  Weight: 80.4 kg

DRUGS (2)
  1. REMICADE [Suspect]
     Indication: CROHN'S DISEASE
     Dates: start: 20110809
  2. IMURAN [Concomitant]

REACTIONS (3)
  - SOFT TISSUE INJURY [None]
  - SUTURE INSERTION [None]
  - ROAD TRAFFIC ACCIDENT [None]
